FAERS Safety Report 16629450 (Version 3)
Quarter: 2019Q4

REPORT INFORMATION
  Report Type: Spontaneous
  Country: US (occurrence: US)
  Receive Date: 20190725
  Receipt Date: 20191108
  Transmission Date: 20200122
  Serious: Yes (Other)
  Sender: FDA-Public Use
  Company Number: US-009507513-1907USA012393

PATIENT
  Age: 77 Year
  Sex: Female

DRUGS (6)
  1. ASPIRIN. [Concomitant]
     Active Substance: ASPIRIN
  2. SIVEXTRO [Suspect]
     Active Substance: TEDIZOLID PHOSPHATE
     Dosage: 1 TABLET (200 MILLIGRAM), DAILY (QD)
     Route: 048
     Dates: start: 20180119
  3. COREG [Concomitant]
     Active Substance: CARVEDILOL
  4. SIVEXTRO [Suspect]
     Active Substance: TEDIZOLID PHOSPHATE
     Indication: WOUND
     Dosage: 1 TABLET (200 MILLIGRAM), DAILY (QD)
     Route: 048
     Dates: start: 20161011
  5. PLAVIX [Concomitant]
     Active Substance: CLOPIDOGREL BISULFATE
  6. SIVEXTRO [Suspect]
     Active Substance: TEDIZOLID PHOSPHATE
     Dosage: 1 TABLET (200 MILLIGRAM), DAILY (QD)
     Route: 048
     Dates: start: 20190712, end: 20190718

REACTIONS (2)
  - Diverticulitis [Not Recovered/Not Resolved]
  - Inappropriate schedule of product administration [Unknown]

NARRATIVE: CASE EVENT DATE: 20190718
